FAERS Safety Report 18109174 (Version 1)
Quarter: 2020Q3

REPORT INFORMATION
  Report Type: Report from Study
  Country: US (occurrence: US)
  Receive Date: 20200804
  Receipt Date: 20200804
  Transmission Date: 20201103
  Serious: Yes (Death)
  Sender: FDA-Public Use
  Company Number: US-ASTRAZENECA-2020SE96886

PATIENT
  Age: 21854 Day
  Sex: Female

DRUGS (18)
  1. DULOXETINE HCL [Concomitant]
     Active Substance: DULOXETINE HYDROCHLORIDE
  2. BACLOFEN. [Concomitant]
     Active Substance: BACLOFEN
  3. HYDROCORTISONE?ALOE [Concomitant]
  4. HYDROCHLOROTHIAZIDE. [Concomitant]
     Active Substance: HYDROCHLOROTHIAZIDE
  5. VERAPAMIL ER [Concomitant]
     Active Substance: VERAPAMIL HYDROCHLORIDE
  6. FERROUS SULFATE. [Concomitant]
     Active Substance: FERROUS SULFATE
  7. VITAMIN D [Concomitant]
     Active Substance: VITAMIN D NOS
  8. PLAVIX [Concomitant]
     Active Substance: CLOPIDOGREL BISULFATE
  9. BENADRYL [Concomitant]
     Active Substance: DIPHENHYDRAMINE HYDROCHLORIDE
  10. CARVEDILOL. [Concomitant]
     Active Substance: CARVEDILOL
  11. GABAPENTIN. [Concomitant]
     Active Substance: GABAPENTIN
  12. TAGRISSO [Suspect]
     Active Substance: OSIMERTINIB
     Indication: LUNG NEOPLASM MALIGNANT
     Route: 048
     Dates: start: 20170408
  13. KLONOPIN [Concomitant]
     Active Substance: CLONAZEPAM
  14. LIPITOR [Concomitant]
     Active Substance: ATORVASTATIN CALCIUM
  15. MULTIVITAMINS [Concomitant]
     Active Substance: VITAMINS
  16. VITAMIN B12 [Concomitant]
     Active Substance: CYANOCOBALAMIN
  17. MINOCYCLINE HCL [Concomitant]
     Active Substance: MINOCYCLINE HYDROCHLORIDE
  18. ASPIRIN. [Concomitant]
     Active Substance: ASPIRIN

REACTIONS (1)
  - Death [Fatal]

NARRATIVE: CASE EVENT DATE: 20200616
